FAERS Safety Report 8633436 (Version 3)
Quarter: 2012Q4

REPORT INFORMATION
  Report Type: 
  Country: US (occurrence: US)
  Receive Date: 20120625
  Receipt Date: 20121017
  Transmission Date: 20130627
  Serious: Yes (Other)
  Sender: FDA-Public Use
  Company Number: US-ASTRAZENECA-2012SE40209

PATIENT
  Age: 77 Year
  Sex: Female

DRUGS (6)
  1. ARIMIDEX [Suspect]
     Route: 048
     Dates: start: 2009, end: 20110918
  2. ARIMIDEX [Suspect]
     Route: 048
  3. ARIMIDEX [Suspect]
     Route: 048
  4. AREDIA [Suspect]
     Route: 065
     Dates: start: 201008
  5. AREDIA [Suspect]
     Route: 065
     Dates: start: 201011
  6. ZOMETA [Suspect]
     Route: 065
     Dates: end: 20110719

REACTIONS (10)
  - Tumour marker increased [Unknown]
  - Recurrent cancer [Unknown]
  - Fall [Unknown]
  - Rib fracture [Recovered/Resolved]
  - Musculoskeletal chest pain [Unknown]
  - Renal disorder [Unknown]
  - Myalgia [Unknown]
  - Osteoporosis [Unknown]
  - Bone pain [Unknown]
  - Drug dose omission [Unknown]
